FAERS Safety Report 10378567 (Version 1)
Quarter: 2014Q3

REPORT INFORMATION
  Report Type: Spontaneous
  Country: US (occurrence: None)
  Receive Date: 20140811
  Receipt Date: 20140811
  Transmission Date: 20150326
  Serious: Yes (Life-Threatening, Hospitalization, Disabling)
  Sender: FDA-Public Use
  Company Number: None

PATIENT
  Age: 41 Year
  Sex: Female
  Weight: 51 kg

DRUGS (1)
  1. RITUXAN [Suspect]
     Active Substance: RITUXIMAB
     Indication: LYMPHOMA
     Dosage: ABOUT 7 MONTHS

REACTIONS (5)
  - Renal transplant [None]
  - Anaemia [None]
  - Renal failure [None]
  - Dialysis [None]
  - Heart rate irregular [None]

NARRATIVE: CASE EVENT DATE: 20140312
